FAERS Safety Report 13996201 (Version 1)
Quarter: 2017Q3

REPORT INFORMATION
  Report Type: Spontaneous
  Country: FR (occurrence: FR)
  Receive Date: 20170921
  Receipt Date: 20170921
  Transmission Date: 20171128
  Serious: Yes (Hospitalization)
  Sender: FDA-Public Use
  Company Number: FR-CONCORDIA PHARMACEUTICALS INC.-GSH201709-005369

PATIENT
  Age: 89 Year
  Sex: Male

DRUGS (4)
  1. LASILIX FAIBLE [Suspect]
     Active Substance: FUROSEMIDE
     Indication: CARDIAC FAILURE
     Route: 048
     Dates: end: 20170116
  2. PERMIXON [Concomitant]
     Active Substance: HERBALS\SAW PALMETTO
  3. KARDEGIC [Concomitant]
     Active Substance: ASPIRIN LYSINE
  4. ALFUZOSIN EXTENDED-RELEASE TABLET [Suspect]
     Active Substance: ALFUZOSIN
     Indication: PROSTATOMEGALY
     Route: 048
     Dates: end: 20170116

REACTIONS (3)
  - Depressed level of consciousness [Recovered/Resolved]
  - Orthostatic hypotension [Recovered/Resolved]
  - Fall [Recovered/Resolved]

NARRATIVE: CASE EVENT DATE: 20170115
